FAERS Safety Report 5473101-7 (Version None)
Quarter: 2007Q4

REPORT INFORMATION
  Report Type: 
  Country: None (occurrence: None)
  Receive Date: 20071001
  Receipt Date: 20070919
  Transmission Date: 20080405
  Serious: Yes (Hospitalization)
  Sender: FDA-Public Use
  Company Number: US-AMGEN-STX242790

PATIENT
  Sex: Female

DRUGS (8)
  1. ENBREL [Suspect]
     Indication: JUVENILE ARTHRITIS
     Route: 058
     Dates: start: 19980101
  2. CYMBALTA [Concomitant]
  3. ZANTAC [Concomitant]
  4. REGLAN [Concomitant]
  5. KYTRIL [Concomitant]
  6. PREDNISONE [Concomitant]
  7. PRILOSEC [Concomitant]
  8. ZOLPIDEM TARTRATE [Concomitant]

REACTIONS (15)
  - ABDOMINAL PAIN [None]
  - ALKALOSIS HYPOKALAEMIC [None]
  - DEHYDRATION [None]
  - HAEMATURIA [None]
  - HEADACHE [None]
  - LEUKOCYTOSIS [None]
  - NAUSEA [None]
  - OVARIAN CYST [None]
  - PAIN [None]
  - PANIC ATTACK [None]
  - PORPHYRIA [None]
  - PYREXIA [None]
  - SMEAR CERVIX ABNORMAL [None]
  - VOMITING [None]
  - WEIGHT DECREASED [None]
